FAERS Safety Report 9363323 (Version 1)
Quarter: 2013Q2

REPORT INFORMATION
  Report Type: Spontaneous
  Country: PT (occurrence: PT)
  Receive Date: 20130624
  Receipt Date: 20130624
  Transmission Date: 20140414
  Serious: Yes (Disabling)
  Sender: FDA-Public Use
  Company Number: PT-ACCORD-018117

PATIENT
  Age: 75 Year
  Sex: Female
  Weight: 63 kg

DRUGS (2)
  1. ANASTROZOLE [Suspect]
     Indication: BREAST NEOPLASM
     Route: 048
     Dates: start: 20130322
  2. THYRAX [Concomitant]
     Indication: HYPOTHYROIDISM
     Route: 048

REACTIONS (2)
  - Abdominal pain [Not Recovered/Not Resolved]
  - Product substitution issue [Unknown]
